FAERS Safety Report 23829643 (Version 1)
Quarter: 2024Q2

REPORT INFORMATION
  Report Type: Spontaneous
  Country: ES (occurrence: ES)
  Receive Date: 20240508
  Receipt Date: 20240508
  Transmission Date: 20240716
  Serious: Yes (Hospitalization)
  Sender: FDA-Public Use
  Company Number: ES-JNJFOC-20240150767

PATIENT

DRUGS (6)
  1. RILPIVIRINE [Suspect]
     Active Substance: RILPIVIRINE
     Indication: HIV infection
     Dosage: NEXT ADMINISTRATIONS: 18-JUL-2023, 21-SEP-2023, 16-NOV-2023, 16-JAN-2024.
     Route: 030
     Dates: start: 20230616
  2. RILPIVIRINE [Suspect]
     Active Substance: RILPIVIRINE
     Dosage: UNK
     Route: 030
     Dates: start: 20240116
  3. CABOTEGRAVIR [Suspect]
     Active Substance: CABOTEGRAVIR
     Indication: HIV infection
     Dosage: NEXT ADMINISTRATIONS: 18-JUL-2023, 21-SEP-2023, 16-NOV-2023, 16-JAN-2024.
     Route: 030
     Dates: start: 20230616
  4. CABOTEGRAVIR [Suspect]
     Active Substance: CABOTEGRAVIR
  5. CABOTEGRAVIR [Suspect]
     Active Substance: CABOTEGRAVIR
  6. BRINTELLIX [Concomitant]
     Active Substance: VORTIOXETINE HYDROBROMIDE
     Indication: Product used for unknown indication
     Dosage: UNK
     Route: 065

REACTIONS (4)
  - Chest discomfort [Recovered/Resolved]
  - Headache [Recovered/Resolved]
  - Back pain [Unknown]
  - Incorrect route of product administration [Unknown]

NARRATIVE: CASE EVENT DATE: 20240116
